FAERS Safety Report 10286287 (Version 2)
Quarter: 2014Q3

REPORT INFORMATION
  Report Type: Report from Study
  Country: SI (occurrence: SI)
  Receive Date: 20140709
  Receipt Date: 20140716
  Transmission Date: 20150326
  Serious: Yes (Other)
  Sender: FDA-Public Use
  Company Number: SI-US-EMD SERONO, INC.-7304972

PATIENT
  Sex: Male

DRUGS (3)
  1. REBIF [Suspect]
     Active Substance: INTERFERON BETA-1A
     Indication: RELAPSING-REMITTING MULTIPLE SCLEROSIS
     Route: 058
     Dates: start: 2002
  2. PAROXAT [Concomitant]
     Active Substance: PAROXETINE HYDROCHLORIDE
     Indication: PRODUCT USED FOR UNKNOWN INDICATION
  3. REBIF [Suspect]
     Active Substance: INTERFERON BETA-1A
     Route: 058
     Dates: start: 2004, end: 201206

REACTIONS (7)
  - Multiple sclerosis [Unknown]
  - Gait disturbance [Unknown]
  - Influenza like illness [Unknown]
  - Vein disorder [Unknown]
  - Multiple sclerosis relapse [Unknown]
  - Fall [Unknown]
  - Pain in extremity [Unknown]

NARRATIVE: CASE EVENT DATE: 2010
